FAERS Safety Report 8167744-X (Version None)
Quarter: 2012Q1

REPORT INFORMATION
  Report Type: 
  Country: None (occurrence: None)
  Receive Date: 20120221
  Receipt Date: 20120213
  Transmission Date: 20120608
  Serious: Yes (Other)
  Sender: FDA-Public Use
  Company Number: 2012TP000002

PATIENT
  Sex: Female

DRUGS (2)
  1. MISOPROSTOL [Suspect]
  2. LIDODERM (5 PCT) [Suspect]
     Dosage: TOP
     Route: 061

REACTIONS (1)
  - COELIAC DISEASE [None]
